FAERS Safety Report 5205823-7 (Version None)
Quarter: 2007Q1

REPORT INFORMATION
  Report Type: 
  Country: None (occurrence: None)
  Receive Date: 20070105
  Receipt Date: 20070105
  Transmission Date: 20070707
  Serious: Yes (Hospitalization)
  Sender: FDA-Public Use
  Company Number: None

PATIENT
  Age: 57 Year
  Sex: Male
  Weight: 90.5 kg

DRUGS (2)
  1. CEFTRIAXONE [Suspect]
     Indication: PROPHYLAXIS
     Dosage: UNKNOWN      (DURATION: ONCE)
  2. LIDOCAINE [Suspect]
     Indication: LOCAL ANAESTHESIA
     Dosage: UNKNOWN   (DURATION: ONCE)

REACTIONS (11)
  - ANAPHYLACTIC REACTION [None]
  - BODY TEMPERATURE DECREASED [None]
  - CONVULSION [None]
  - CREPITATIONS [None]
  - DIABETIC NEUROPATHY [None]
  - DRUG HYPERSENSITIVITY [None]
  - FUNGAL INFECTION [None]
  - PAIN [None]
  - PALLOR [None]
  - RASH [None]
  - URTICARIA [None]
